FAERS Safety Report 21010602 (Version 1)
Quarter: 2022Q2

REPORT INFORMATION
  Report Type: Spontaneous
  Country: HR (occurrence: HR)
  Receive Date: 20220627
  Receipt Date: 20220627
  Transmission Date: 20220721
  Serious: Yes (Other)
  Sender: FDA-Public Use
  Company Number: None

PATIENT
  Age: 14 Year
  Sex: Female
  Weight: 60 kg

DRUGS (2)
  1. ZOLOFT [Suspect]
     Active Substance: SERTRALINE HYDROCHLORIDE
     Dosage: 2 G 1X/DAY
     Route: 048
     Dates: start: 20220502, end: 20220502
  2. MAPROTILINE HYDROCHLORIDE [Suspect]
     Active Substance: MAPROTILINE HYDROCHLORIDE
     Dosage: 625 MG 1X/DAY
     Route: 048
     Dates: start: 20220502, end: 20220502

REACTIONS (8)
  - Intentional overdose [Unknown]
  - Seizure [Unknown]
  - Epilepsy [Unknown]
  - Suicide attempt [Unknown]
  - Circulatory collapse [Unknown]
  - Psychomotor retardation [Unknown]
  - Asthenia [Unknown]
  - Somnolence [Recovered/Resolved]

NARRATIVE: CASE EVENT DATE: 20220502
